FAERS Safety Report 4361902-8 (Version None)
Quarter: 2004Q2

REPORT INFORMATION
  Report Type: 
  Country: None (occurrence: None)
  Receive Date: 20040521
  Receipt Date: 20030701
  Transmission Date: 20050107
  Serious: No
  Sender: FDA-Public Use
  Company Number: US-GLAXOSMITHKLINE-A0414929A

PATIENT
  Age: 85 Year
  Sex: Female

DRUGS (1)
  1. THORAZINE [Suspect]
     Indication: SEDATION
     Route: 048

REACTIONS (4)
  - BEDRIDDEN [None]
  - HALLUCINATION [None]
  - PSYCHOTIC DISORDER [None]
  - VOMITING [None]
